FAERS Safety Report 22356526 (Version 2)
Quarter: 2023Q2

REPORT INFORMATION
  Report Type: Spontaneous
  Country: PT (occurrence: PT)
  Receive Date: 20230523
  Receipt Date: 20230606
  Transmission Date: 20230721
  Serious: Yes (Death, Other)
  Sender: FDA-Public Use
  Company Number: PT-BAXTER-2023BAX020952

PATIENT
  Age: 18 Year
  Sex: Male
  Weight: 65 kg

DRUGS (9)
  1. DEXAMETHASONE [Suspect]
     Active Substance: DEXAMETHASONE
     Indication: Acute lymphocytic leukaemia
     Dosage: START DATE: JUN-2020, AS A PART OF 2ND LINE-HIPER-CVAD REGIMEN
  2. CYTARABINE [Suspect]
     Active Substance: CYTARABINE
     Indication: Hyperleukocytosis
     Dosage: START DATE: 2020 (1 GR)
  3. INOTUZUMAB OZOGAMICIN [Suspect]
     Active Substance: INOTUZUMAB OZOGAMICIN
     Indication: Acute lymphocytic leukaemia
     Dosage: START DATE: SEP-2020
  4. INOTUZUMAB OZOGAMICIN [Suspect]
     Active Substance: INOTUZUMAB OZOGAMICIN
     Dosage: START DATE: OCT-2020 (INCOMPLETE BECAUSE OF INFECTION)
  5. CYCLOPHOSPHAMIDE [Suspect]
     Active Substance: CYCLOPHOSPHAMIDE
     Indication: Acute lymphocytic leukaemia
     Dosage: START DATE: JUN-2020, AS A PART OF 2ND LINE-HIPER-CVAD REGIMEN
  6. VINCRISTINE SULFATE [Suspect]
     Active Substance: VINCRISTINE SULFATE
     Indication: Acute lymphocytic leukaemia
     Dosage: START DATE: JUN-2020, AS A PART OF 2ND LINE-HIPER-CVAD REGIMEN
  7. ADRIAMYCIN [Suspect]
     Active Substance: DOXORUBICIN HYDROCHLORIDE
     Indication: Acute lymphocytic leukaemia
     Dosage: START DATE: JUN-2020, AS A PART OF 2ND LINE-HIPER-CVAD REGIMEN
  8. RITUXIMAB [Suspect]
     Active Substance: RITUXIMAB
     Indication: Acute lymphocytic leukaemia
     Dosage: START DATE: JUN-2020, COMBINED WITH 2ND LINE-HIPER-CVAD REGIMEN
  9. DEXTROMETHORPHAN [Suspect]
     Active Substance: DEXTROMETHORPHAN
     Indication: Hyperleukocytosis
     Dosage: START DATE:2020

REACTIONS (9)
  - COVID-19 [Fatal]
  - Cellulitis [Fatal]
  - Pneumonia necrotising [Fatal]
  - Sepsis [Fatal]
  - Corynebacterium infection [Fatal]
  - Febrile neutropenia [None]
  - Hyperleukocytosis [None]
  - Neutropenia [None]
  - Subdural haematoma [None]
